FAERS Safety Report 25463431 (Version 4)
Quarter: 2025Q4

REPORT INFORMATION
  Report Type: Spontaneous
  Country: US (occurrence: US)
  Receive Date: 20250620
  Receipt Date: 20251017
  Transmission Date: 20260117
  Serious: Yes (Life-Threatening, Hospitalization, Other)
  Sender: BRISTOL-MYERS SQUIBB COMPANY
  Company Number: US-BRISTOL-MYERS SQUIBB COMPANY-2025-088287

PATIENT
  Age: 79 Year
  Sex: Male
  Weight: 67.8 kg

DRUGS (49)
  1. LENALIDOMIDE [Suspect]
     Active Substance: LENALIDOMIDE
     Indication: Plasma cell myeloma
     Dosage: MOST RECENT DOSE WAS ADMINISTERED ON 07-APR-2025
     Dates: start: 20240413, end: 20250407
  2. TOLODODEKIN ALFA [Suspect]
     Active Substance: TOLODODEKIN ALFA
     Indication: Plasma cell myeloma
     Dosage: MOST RECENT DOSE WAS ADMINISTERED ON 20-MAR-2025
     Dates: start: 20240313, end: 20250320
  3. TALQUETAMAB [Suspect]
     Active Substance: TALQUETAMAB
     Indication: Plasma cell myeloma
     Dates: start: 20240328, end: 20240814
  4. TIZANIDINE HYDROCHLORIDE [Concomitant]
     Active Substance: TIZANIDINE HYDROCHLORIDE
     Indication: Muscular weakness
     Dates: start: 20151211
  5. ASPIRIN [Concomitant]
     Active Substance: ASPIRIN
     Indication: Back pain
     Dates: start: 20191115
  6. ASPIRIN [Concomitant]
     Active Substance: ASPIRIN
     Indication: Neuralgia
  7. ASPIRIN [Concomitant]
     Active Substance: ASPIRIN
     Indication: Neck pain
  8. BUPROPION XL WELLBUTRIN XL [Concomitant]
     Indication: Depression
     Dates: start: 20191115
  9. CYMBALTA [Concomitant]
     Active Substance: DULOXETINE HYDROCHLORIDE
     Indication: Depression
     Dates: start: 20191115
  10. CYMBALTA [Concomitant]
     Active Substance: DULOXETINE HYDROCHLORIDE
     Indication: Peripheral sensory neuropathy
  11. ALLEGRA [Concomitant]
     Active Substance: FEXOFENADINE HYDROCHLORIDE
     Indication: Rhinitis allergic
     Dates: start: 20191115
  12. TRAMADOL (ULTRAM) [Concomitant]
     Indication: Back pain
     Dates: start: 20191115
  13. TRAMADOL (ULTRAM) [Concomitant]
     Indication: Neuralgia
  14. TRAMADOL (ULTRAM) [Concomitant]
     Indication: Neck pain
  15. ZOLPIDEM CR (AMBIEN CR) [Concomitant]
     Indication: Sleep apnoea syndrome
     Dates: start: 20191115
  16. CRESTOR [Concomitant]
     Active Substance: ROSUVASTATIN CALCIUM
     Indication: Hyperlipidaemia
     Dates: start: 20201023
  17. BROMOCRIPTINE PARLODEL [Concomitant]
     Indication: Type 2 diabetes mellitus
     Dates: start: 20220412
  18. GABAPENTIN [Concomitant]
     Active Substance: GABAPENTIN
     Indication: Peripheral sensory neuropathy
     Dates: start: 20220412
  19. METOCLOPRAMIDE [Concomitant]
     Active Substance: METOCLOPRAMIDE
     Indication: Gastrooesophageal reflux disease
     Dates: start: 20220412
  20. OMEPRAZOLE [Concomitant]
     Active Substance: OMEPRAZOLE
     Indication: Gastrooesophageal reflux disease
     Dates: start: 20220412
  21. MIRALAX [Concomitant]
     Active Substance: POLYETHYLENE GLYCOL 3350
     Indication: Constipation
     Dates: start: 20220513
  22. ACETAMINOPHEN [Concomitant]
     Active Substance: ACETAMINOPHEN
     Indication: Back pain
     Dates: start: 20220722
  23. ACETAMINOPHEN [Concomitant]
     Active Substance: ACETAMINOPHEN
     Indication: Neuralgia
  24. ACETAMINOPHEN [Concomitant]
     Active Substance: ACETAMINOPHEN
     Indication: Neck pain
  25. MULTIVITAMIN TABLET 50+ADULT [Concomitant]
     Indication: Nutritional supplementation
     Dates: start: 20220722
  26. ONDANSETRON [Concomitant]
     Active Substance: ONDANSETRON
     Indication: Nausea
     Dates: start: 20220722
  27. BREZTRI AEROSPHERE 160-9-4.8 MCG/ACT [Concomitant]
     Indication: Chronic obstructive pulmonary disease
     Dates: start: 20230420
  28. MONTELUKAST [Concomitant]
     Active Substance: MONTELUKAST
     Indication: Rhinitis allergic
     Dates: start: 20230420
  29. EMPAGLIFLOZIN [Concomitant]
     Active Substance: EMPAGLIFLOZIN
     Indication: Type 2 diabetes mellitus
     Dates: start: 20230926
  30. ALLOPURINOL ZYLOPRIM [Concomitant]
     Indication: Hyperuricaemia
     Dates: start: 20240219
  31. CLOTRIMAZOLE-BETAMETHASONE (LOTRISONE) CREAM [Concomitant]
     Indication: Prophylaxis
     Dates: start: 20240219
  32. INSULIN GLARGINE [Concomitant]
     Active Substance: INSULIN GLARGINE
     Indication: Type 2 diabetes mellitus
     Dates: start: 20240219
  33. INSULIN GLARGINE [Concomitant]
     Active Substance: INSULIN GLARGINE
     Dates: start: 20240816
  34. TIRZEPATIDE [Concomitant]
     Active Substance: TIRZEPATIDE
     Indication: Type 2 diabetes mellitus
     Dates: start: 20240219
  35. VALACYCLOVIR [Concomitant]
     Active Substance: VALACYCLOVIR HYDROCHLORIDE
     Indication: Antiviral prophylaxis
     Dates: start: 20240219
  36. RANITIDINE HYDROCHLORIDE [Concomitant]
     Active Substance: RANITIDINE HYDROCHLORIDE
     Indication: Gastrooesophageal reflux disease
     Dates: start: 20240229
  37. PROCHLORPERAZINE [Concomitant]
     Active Substance: PROCHLORPERAZINE
     Indication: Nausea
     Dates: start: 20240313
  38. BUDESONIDE-GLYCOPYR-FORMOTEROL 160-9-4.8 MCG/ACTUATION HFA AEROSOL INH [Concomitant]
     Indication: Chronic obstructive pulmonary disease
     Dates: start: 20240328
  39. INSULIN LISPRO [Concomitant]
     Active Substance: INSULIN LISPRO
     Indication: Type 2 diabetes mellitus
     Dates: start: 20240328
  40. LOPERAMIDE [Concomitant]
     Active Substance: LOPERAMIDE
     Indication: Product used for unknown indication
     Dates: start: 20240403
  41. MAGNESIUM OXIDE [Concomitant]
     Active Substance: MAGNESIUM OXIDE
     Indication: Hypomagnesaemia
     Dates: start: 20240410
  42. TRIAMCINOLONE (KENALOG) 0.1% [Concomitant]
     Indication: Dry skin
     Dates: start: 20240429
  43. CLOBETASOL [Concomitant]
     Active Substance: CLOBETASOL
     Indication: Dry skin
     Dates: start: 20241003
  44. CLOBETASOL [Concomitant]
     Active Substance: CLOBETASOL
     Indication: Palmar-plantar erythrodysaesthesia syndrome
  45. UREA 40% [Concomitant]
     Active Substance: UREA
     Indication: Dry skin
     Dosage: 40%
     Dates: start: 20241003
  46. UREA 40% [Concomitant]
     Active Substance: UREA
     Indication: Palmar-plantar erythrodysaesthesia syndrome
  47. CEFADROXIL [Concomitant]
     Active Substance: CEFADROXIL
     Indication: Product used for unknown indication
     Dates: start: 20250220
  48. FERROUS SULFATE [Concomitant]
     Active Substance: FERROUS SULFATE
     Indication: Iron deficiency anaemia
     Dates: start: 20250409
  49. GUAIFENESIN [Concomitant]
     Active Substance: GUAIFENESIN
     Indication: Cough

REACTIONS (1)
  - Myocardial infarction [Recovered/Resolved]

NARRATIVE: CASE EVENT DATE: 20250417
